FAERS Safety Report 14006731 (Version 1)
Quarter: 2017Q3

REPORT INFORMATION
  Report Type: Report from Study
  Country: JP (occurrence: JP)
  Receive Date: 20170925
  Receipt Date: 20170925
  Transmission Date: 20171128
  Serious: Yes (Hospitalization)
  Sender: FDA-Public Use
  Company Number: JP-VIFOR (INTERNATIONAL) INC.-VIT-2017-09914

PATIENT
  Age: 85 Year
  Sex: Male
  Weight: 55.3 kg

DRUGS (20)
  1. LOXOPROFEN SODIUM [Concomitant]
     Active Substance: LOXOPROFEN SODIUM
     Route: 048
  2. CYTOTEC [Concomitant]
     Active Substance: MISOPROSTOL
     Route: 048
  3. SENNOSIDE A+B CALCIUM [Concomitant]
     Active Substance: SENNOSIDES A AND B
     Route: 048
  4. EFIENT [Concomitant]
     Active Substance: PRASUGREL HYDROCHLORIDE
     Route: 048
  5. ZOLPIDEM TARTRATE. [Concomitant]
     Active Substance: ZOLPIDEM TARTRATE
     Route: 048
  6. ATORVASTATIN [Concomitant]
     Active Substance: ATORVASTATIN
     Route: 048
  7. LOXOPROFEN [Concomitant]
     Active Substance: LOXOPROFEN
     Route: 050
  8. VELPHORO [Suspect]
     Active Substance: FERRIC OXYHYDROXIDE
     Route: 048
     Dates: start: 20170220, end: 20170312
  9. LYRICA [Concomitant]
     Active Substance: PREGABALIN
     Route: 048
  10. MICARDIS [Concomitant]
     Active Substance: TELMISARTAN
     Route: 048
  11. CARVEDILOL. [Concomitant]
     Active Substance: CARVEDILOL
     Route: 048
  12. MOHRUS TAPE [Concomitant]
     Active Substance: KETOPROFEN
     Route: 050
  13. ANTEBATE [Concomitant]
     Active Substance: BETAMETHASONE DIPROPIONATE
     Route: 050
  14. CARVEDILOL. [Concomitant]
     Active Substance: CARVEDILOL
     Route: 048
  15. CALCITRIOL. [Concomitant]
     Active Substance: CALCITRIOL
     Route: 048
  16. AMLODIPINE [Concomitant]
     Active Substance: AMLODIPINE BESYLATE
     Route: 048
  17. VELPHORO [Suspect]
     Active Substance: FERRIC OXYHYDROXIDE
     Indication: HYPERPHOSPHATAEMIA
     Route: 048
     Dates: start: 20170123, end: 20170219
  18. TAKELDA [Concomitant]
     Active Substance: ASPIRIN\LANSOPRAZOLE
     Route: 048
  19. MYOCOR [Concomitant]
     Active Substance: NITROGLYCERIN
     Route: 048
  20. VELPHORO [Suspect]
     Active Substance: FERRIC OXYHYDROXIDE
     Route: 048
     Dates: start: 20170313, end: 20170409

REACTIONS (2)
  - Diarrhoea [Not Recovered/Not Resolved]
  - Angina pectoris [Unknown]

NARRATIVE: CASE EVENT DATE: 20170221
